FAERS Safety Report 13725314 (Version 1)
Quarter: 2017Q3

REPORT INFORMATION
  Report Type: Spontaneous
  Country: US (occurrence: US)
  Receive Date: 20170706
  Receipt Date: 20170706
  Transmission Date: 20171127
  Serious: Yes (Life-Threatening, Hospitalization)
  Sender: FDA-Public Use
  Company Number: None

PATIENT
  Age: 29 Year
  Weight: 71.55 kg

DRUGS (8)
  1. NORCO [Concomitant]
     Active Substance: ACETAMINOPHEN\HYDROCODONE BITARTRATE
  2. TUMS [Concomitant]
     Active Substance: CALCIUM CARBONATE
  3. ONDANSETRON ODT 4MG TABLETS [Suspect]
     Active Substance: ONDANSETRON
     Indication: POST CONCUSSION SYNDROME
     Dosage: ?          OTHER STRENGTH:MG;QUANTITY:1 TABLET(S);?
     Route: 060
     Dates: start: 20170623, end: 20170628
  4. DOCUSATE [Concomitant]
     Active Substance: DOCUSATE
  5. LORATADINE. [Concomitant]
     Active Substance: LORATADINE
  6. SENNA [Concomitant]
     Active Substance: SENNA LEAF\SENNOSIDES\SENNOSIDES A AND B
  7. WOMEN^S ONE [Concomitant]
  8. LEVOTHYROXINE. [Concomitant]
     Active Substance: LEVOTHYROXINE

REACTIONS (2)
  - Pain [None]
  - Appendicitis [None]

NARRATIVE: CASE EVENT DATE: 20170628
